FAERS Safety Report 6738397-X (Version None)
Quarter: 2010Q2

REPORT INFORMATION
  Report Type: 
  Country: None (occurrence: None)
  Receive Date: 20100520
  Receipt Date: 20100507
  Transmission Date: 20101027
  Serious: Yes (Other)
  Sender: FDA-Public Use
  Company Number: 011615

PATIENT
  Sex: Male
  Weight: 55 kg

DRUGS (2)
  1. NEUPRO [Suspect]
     Indication: PARKINSON'S DISEASE
     Dosage: 8 MG QD TRANSDERMAL
     Route: 062
     Dates: start: 20100301, end: 20100305
  2. CITALOPRAM HYDROBROMIDE [Suspect]
     Dosage: 20 MG QD ORAL
     Route: 048
     Dates: start: 20100220

REACTIONS (3)
  - COGNITIVE DISORDER [None]
  - CONFUSIONAL STATE [None]
  - PSYCHOMOTOR HYPERACTIVITY [None]
